FAERS Safety Report 5275915-5 (Version None)
Quarter: 2007Q1

REPORT INFORMATION
  Report Type: 
  Country: None (occurrence: None)
  Receive Date: 20070326
  Receipt Date: 20070312
  Transmission Date: 20070707
  Serious: Yes (Other)
  Sender: FDA-Public Use
  Company Number: US-ROCHE-487603

PATIENT
  Age: 30 Year
  Sex: Female

DRUGS (3)
  1. ACCUTANE [Suspect]
     Indication: DRUG USE FOR UNKNOWN INDICATION
     Route: 065
     Dates: start: 20070115, end: 20070215
  2. ACCUTANE [Suspect]
     Route: 065
     Dates: start: 20061115, end: 20061215
  3. BIRTH CONTROL PILL [Concomitant]
     Route: 065

REACTIONS (1)
  - ABORTION INDUCED [None]
